FAERS Safety Report 6341817-6 (Version None)
Quarter: 2009Q3

REPORT INFORMATION
  Report Type: 
  Country: None (occurrence: None)
  Receive Date: 20090904
  Receipt Date: 20090825
  Transmission Date: 20100115
  Serious: Yes (Other)
  Sender: FDA-Public Use
  Company Number: US-GENENTECH-289640

PATIENT
  Age: 1 Year

DRUGS (3)
  1. RITUXAN [Suspect]
     Indication: AUTOIMMUNE DISORDER
     Dosage: 375 MG/M2, 1/WEEK
     Route: 065
  2. MYCOPHENOLATE MOFETIL [Suspect]
     Indication: AUTOIMMUNE DISORDER
     Dosage: 12000 MG/M2, BID
     Route: 065
  3. PREDNISONE TAB [Suspect]
     Indication: AUTOIMMUNE DISORDER
     Route: 065

REACTIONS (5)
  - ANAEMIA HAEMOLYTIC AUTOIMMUNE [None]
  - DISEASE PROGRESSION [None]
  - NEUTROPENIA [None]
  - NO THERAPEUTIC RESPONSE [None]
  - SPLENOMEGALY [None]
